FAERS Safety Report 4855958-3 (Version None)
Quarter: 2005Q4

REPORT INFORMATION
  Report Type: 
  Country: None (occurrence: None)
  Receive Date: 20051216
  Receipt Date: 20051212
  Transmission Date: 20060501
  Serious: Yes (Other)
  Sender: FDA-Public Use
  Company Number: PHEH2005US13368

PATIENT
  Sex: Male

DRUGS (2)
  1. PROTOPIC [Suspect]
     Dates: start: 20030101
  2. ELIDEL [Suspect]
     Route: 061
     Dates: start: 20030101

REACTIONS (6)
  - EMOTIONAL DISTRESS [None]
  - FEAR OF DISEASE [None]
  - INJURY [None]
  - MENTAL DISORDER [None]
  - PAIN [None]
  - SCAR [None]
